FAERS Safety Report 13982655 (Version 1)
Quarter: 2017Q3

REPORT INFORMATION
  Report Type: Spontaneous
  Country: US (occurrence: US)
  Receive Date: 20170918
  Receipt Date: 20170918
  Transmission Date: 20171128
  Serious: Yes (Other)
  Sender: FDA-Public Use
  Company Number: None

PATIENT
  Sex: Female
  Weight: 20.25 kg

DRUGS (2)
  1. CHILDRENS MUCINEX MINI-MELTS COUGH [Suspect]
     Active Substance: DEXTROMETHORPHAN HYDROBROMIDE\GUAIFENESIN
     Indication: COUGH
     Dosage: QUANTITY:.5 PACKET;?
     Route: 048
     Dates: start: 20170918, end: 20170918
  2. CHILDREN^S DAILY MULTIVITAMIN AND CALCIUM + D CHEW [Concomitant]

REACTIONS (7)
  - Crying [None]
  - Movement disorder [None]
  - Delirium [None]
  - Dysarthria [None]
  - Insomnia [None]
  - Malaise [None]
  - Depressed mood [None]

NARRATIVE: CASE EVENT DATE: 20170918
